FAERS Safety Report 13307590 (Version 1)
Quarter: 2017Q1

REPORT INFORMATION
  Report Type: Spontaneous
  Country: FR (occurrence: FR)
  Receive Date: 20170308
  Receipt Date: 20170308
  Transmission Date: 20170428
  Serious: Yes (Hospitalization)
  Sender: FDA-Public Use
  Company Number: FR-009507513-1703FRA002373

PATIENT
  Age: 32 Year
  Sex: Male

DRUGS (10)
  1. CARBOPLATIN. [Suspect]
     Active Substance: CARBOPLATIN
     Indication: TESTICULAR GERM CELL TUMOUR
     Dosage: 8 MG/M2/DAY, I.E. 1600 MG, SLOW INTRAVENOUSLY OVER 1 HOUR
     Route: 042
     Dates: start: 20161114, end: 20161114
  2. CARBOPLATIN. [Suspect]
     Active Substance: CARBOPLATIN
     Dosage: 1172 MG, SLOW INTRAVENOUSLY OVER 1 HOUR
     Route: 042
     Dates: start: 20161116, end: 20161116
  3. TAZOCILLINE [Suspect]
     Active Substance: PIPERACILLIN SODIUM\TAZOBACTAM SODIUM
     Indication: INFECTION
     Dosage: UNK
     Dates: start: 201611, end: 201611
  4. IMIPENEM AND CILASTATIN [Suspect]
     Active Substance: CILASTATIN SODIUM\IMIPENEM
     Indication: INFECTION
     Dosage: UNK
     Dates: start: 201611, end: 201611
  5. CARBOPLATIN. [Suspect]
     Active Substance: CARBOPLATIN
     Dosage: 8 MG/M2/DAY, I.E. 1600 MG, SLOW INTRAVENOUSLY OVER 1 HOUR
     Route: 042
     Dates: start: 20161115, end: 20161115
  6. ZELITREX [Suspect]
     Active Substance: VALACYCLOVIR HYDROCHLORIDE
     Indication: ANTIVIRAL PROPHYLAXIS
     Dosage: UNK, QD
     Route: 048
     Dates: start: 20161113, end: 20161126
  7. DOLOSAL [Suspect]
     Active Substance: MEPERIDINE HYDROCHLORIDE
     Indication: MUCOSAL INFLAMMATION
     Dosage: UNK
     Dates: start: 20161123, end: 20161127
  8. ETOPOSIDE. [Suspect]
     Active Substance: ETOPOSIDE
     Indication: TESTICULAR GERM CELL TUMOUR
     Dosage: 400 MG/M2, I.E. 800 MG
     Route: 042
     Dates: start: 20161114, end: 20161116
  9. VANCOMYCIN [Suspect]
     Active Substance: VANCOMYCIN
     Indication: INFECTION
     Dosage: UNK
     Dates: start: 20161123, end: 20161125
  10. NIVESTIM [Concomitant]
     Active Substance: FILGRASTIM
     Dosage: UNK
     Dates: start: 20161119, end: 20161129

REACTIONS (2)
  - Renal tubular disorder [Recovered/Resolved with Sequelae]
  - Acute kidney injury [Recovered/Resolved with Sequelae]

NARRATIVE: CASE EVENT DATE: 20161126
